FAERS Safety Report 19452792 (Version 2)
Quarter: 2021Q3

REPORT INFORMATION
  Report Type: Spontaneous
  Country: US (occurrence: US)
  Receive Date: 20210623
  Receipt Date: 20210728
  Transmission Date: 20211014
  Serious: No
  Sender: FDA-Public Use
  Company Number: US-ORGANON-O2106USA001706

PATIENT
  Sex: Female

DRUGS (1)
  1. NEXPLANON [Suspect]
     Active Substance: ETONOGESTREL
     Indication: CONTRACEPTION
     Dosage: 1 ROD/ 3 YEARS IN LEFT ARM
     Route: 059
     Dates: start: 20200312

REACTIONS (5)
  - Implant site swelling [Not Recovered/Not Resolved]
  - Implant site discolouration [Recovered/Resolved]
  - Weight decreased [Not Recovered/Not Resolved]
  - Implant site scar [Recovered/Resolved]
  - Eating disorder [Not Recovered/Not Resolved]
